FAERS Safety Report 7828263-0 (Version None)
Quarter: 2011Q4

REPORT INFORMATION
  Report Type: 
  Country: None (occurrence: None)
  Receive Date: 20111020
  Receipt Date: 20111018
  Transmission Date: 20120403
  Serious: Yes (Death, Hospitalization)
  Sender: FDA-Public Use
  Company Number: TW-ABBOTT-11P-153-0866089-00

PATIENT

DRUGS (1)
  1. HUMIRA [Suspect]
     Indication: RHEUMATOID ARTHRITIS
     Route: 058
     Dates: start: 20110324, end: 20110501

REACTIONS (4)
  - OEDEMA [None]
  - LUNG INFECTION [None]
  - JUVENILE ARTHRITIS [None]
  - HYPERSENSITIVITY [None]
